FAERS Safety Report 8338370-4 (Version None)
Quarter: 2012Q2

REPORT INFORMATION
  Report Type: 
  Country: None (occurrence: None)
  Receive Date: 20120504
  Receipt Date: 20120426
  Transmission Date: 20120825
  Serious: Yes (Other)
  Sender: FDA-Public Use
  Company Number: US-FRI-1000028879

PATIENT
  Age: 55 Year
  Sex: Female

DRUGS (5)
  1. VIIBRYD [Suspect]
     Indication: DEPRESSION
     Dosage: 10 MG
     Dates: start: 20120118, end: 20120124
  2. VIIBRYD [Suspect]
     Dosage: 20 MG
     Dates: start: 20120125, end: 20120420
  3. SYNTHROID [Concomitant]
     Indication: HYPOTHYROIDISM
  4. CEFTIN [Suspect]
     Indication: SINUSITIS
     Dates: start: 20120201, end: 20120302
  5. VIIBRYD [Suspect]
     Dosage: 15 MG
     Dates: start: 20120421

REACTIONS (6)
  - DIARRHOEA [None]
  - ABDOMINAL PAIN [None]
  - MYCOTIC ALLERGY [None]
  - SINUSITIS [None]
  - NERVOUSNESS [None]
  - ALLERGY TO PLANTS [None]
